FAERS Safety Report 6487686-5 (Version None)
Quarter: 2009Q4

REPORT INFORMATION
  Report Type: 
  Country: None (occurrence: None)
  Receive Date: 20091209
  Receipt Date: 20091209
  Transmission Date: 20100525
  Serious: Yes (Hospitalization)
  Sender: FDA-Public Use
  Company Number: None

PATIENT
  Age: 46 Year
  Sex: Female
  Weight: 129.5 kg

DRUGS (14)
  1. AZITHROMYCIN [Suspect]
     Indication: UPPER RESPIRATORY TRACT INFECTION
     Dosage: ONE TAB DAILY PO RECENT, 2 DOSES
     Route: 048
  2. METFORMIN HCL [Concomitant]
  3. TOPAMAX [Concomitant]
  4. DICLOFENAC [Concomitant]
  5. IBUPROFEN [Concomitant]
  6. SEROQUEL [Concomitant]
  7. POLIPERIDONE [Concomitant]
  8. DIFLUCAN [Concomitant]
  9. NYSTATIN [Concomitant]
  10. HYDROCORTISONE [Concomitant]
  11. HALOPERIDOL [Concomitant]
  12. CLONAZEPAM [Concomitant]
  13. TAGAMET [Concomitant]
  14. PROMETHAZINE [Concomitant]

REACTIONS (3)
  - COXSACKIE VIRAL INFECTION [None]
  - DRUG HYPERSENSITIVITY [None]
  - STEVENS-JOHNSON SYNDROME [None]
